FAERS Safety Report 21323544 (Version 1)
Quarter: 2022Q3

REPORT INFORMATION
  Report Type: Spontaneous
  Country: US (occurrence: None)
  Receive Date: 20220909
  Receipt Date: 20220909
  Transmission Date: 20221026
  Serious: No
  Sender: FDA-Public Use
  Company Number: None

PATIENT

DRUGS (1)
  1. FENTANYL [Suspect]
     Active Substance: FENTANYL
     Dosage: OTHER STRENGTH : 10 MCG/ML;?

REACTIONS (2)
  - Device connection issue [None]
  - Device malfunction [None]

NARRATIVE: CASE EVENT DATE: 20220827
